FAERS Safety Report 20750315 (Version 1)
Quarter: 2022Q2

REPORT INFORMATION
  Report Type: Spontaneous
  Country: US (occurrence: US)
  Receive Date: 20220426
  Receipt Date: 20220426
  Transmission Date: 20220721
  Serious: No
  Sender: FDA-Public Use
  Company Number: US-PFIZER INC-202101085553

PATIENT
  Age: 69 Year
  Sex: Male
  Weight: 78.93 kg

DRUGS (10)
  1. CHANTIX [Suspect]
     Active Substance: VARENICLINE TARTRATE
     Dosage: UNK
  2. GABAPENTIN [Concomitant]
     Active Substance: GABAPENTIN
     Dosage: UNK
  3. TYLENOL [Concomitant]
     Active Substance: ACETAMINOPHEN
     Dosage: UNK
  4. AMLODIPINE [Concomitant]
     Active Substance: AMLODIPINE BESYLATE
     Dosage: UNK
  5. PHENOBARBITAL [Concomitant]
     Active Substance: PHENOBARBITAL
     Dosage: UNK
  6. CLONAZEPAM [Concomitant]
     Active Substance: CLONAZEPAM
     Dosage: UNK
  7. CLONIDINE HYDROCHLORIDE [Concomitant]
     Active Substance: CLONIDINE HYDROCHLORIDE
     Dosage: UNK
  8. IBUPROFEN [Concomitant]
     Active Substance: IBUPROFEN
     Dosage: 800 MG
  9. ATORVASTATIN [Concomitant]
     Active Substance: ATORVASTATIN
     Dosage: 40 MG
  10. LOSARTAN [Concomitant]
     Active Substance: LOSARTAN
     Dosage: UNK

REACTIONS (6)
  - Drug ineffective [Unknown]
  - Recalled product administered [Unknown]
  - Bronchitis [Unknown]
  - Respiratory disorder [Unknown]
  - Dyspnoea [Unknown]
  - Rhinorrhoea [Unknown]
